FAERS Safety Report 6372652-0 (Version None)
Quarter: 2009Q3

REPORT INFORMATION
  Report Type: 
  Country: None (occurrence: None)
  Receive Date: 20090924
  Receipt Date: 20090410
  Transmission Date: 20100115
  Serious: Yes (Other)
  Sender: FDA-Public Use
  Company Number: US-ASTRAZENECA-2008UW27545

PATIENT
  Age: 26 Year
  Sex: Female
  Weight: 61.2 kg

DRUGS (2)
  1. SEROQUEL [Suspect]
     Indication: BIPOLAR DISORDER
     Dosage: 25 MG, 100 MG, 200 MG, 300 MG
     Route: 048
     Dates: start: 20040101, end: 20080101
  2. ABILIFY [Concomitant]
     Dates: start: 20070101

REACTIONS (5)
  - ABDOMINAL DISCOMFORT [None]
  - HYPERGLYCAEMIA [None]
  - PANCREATITIS [None]
  - RENAL DISORDER [None]
  - ROAD TRAFFIC ACCIDENT [None]
